FAERS Safety Report 5634196-0 (Version None)
Quarter: 2008Q1

REPORT INFORMATION
  Report Type: 
  Country: None (occurrence: None)
  Receive Date: 20080219
  Receipt Date: 20080205
  Transmission Date: 20080703
  Serious: Yes (Other)
  Sender: FDA-Public Use
  Company Number: 2008-00434

PATIENT
  Age: 71 Year
  Sex: Female
  Weight: 55 kg

DRUGS (19)
  1. VELCADE [Suspect]
     Indication: MULTIPLE MYELOMA
     Dosage: 1.90 MG, INTRAVENOUS
     Route: 042
     Dates: start: 20070508, end: 20070518
  2. ITRACONAZOLE [Concomitant]
  3. MAGNESIUM OXIDE (MAGNESIUM OXIDE) [Concomitant]
  4. LENDORM [Concomitant]
  5. VALTREX (VALACICLOVIR HYDROCLORIDE) [Concomitant]
  6. BIOFERMIN R (STREPTOCOCCUS FAECALIS) [Concomitant]
  7. DIFLUCAN [Concomitant]
  8. MAXIPIME [Concomitant]
  9. LEVOFLOXACIN [Concomitant]
  10. SELBEX (TEPRENONE) [Concomitant]
  11. NORVASC [Concomitant]
  12. CANDESARTAN CILEXETIL [Concomitant]
  13. MEROPEN (MEROPENEM) [Concomitant]
  14. RED BLOOD CELLS [Concomitant]
  15. METHYCOBAL (MECOBALAMIN) [Concomitant]
  16. STADERM (IBUPROFEN PICONOL) [Concomitant]
  17. CALONAL (PARACETAMOL) [Concomitant]
  18. SODIUM RISEDRONATE HYDRATE [Concomitant]
  19. BAKTAR (SULFAMETHOXAZOLE, TRIMETHOPRIM) [Concomitant]

REACTIONS (8)
  - ANAEMIA [None]
  - DIARRHOEA [None]
  - LEFT ATRIAL DILATATION [None]
  - PLATELET COUNT DECREASED [None]
  - PLEURAL EFFUSION [None]
  - PYREXIA [None]
  - RASH [None]
  - VENTRICULAR EXTRASYSTOLES [None]
